FAERS Safety Report 14657056 (Version 1)
Quarter: 2018Q1

REPORT INFORMATION
  Report Type: Report from Study
  Country: CA (occurrence: CA)
  Receive Date: 20180319
  Receipt Date: 20180319
  Transmission Date: 20180509
  Serious: Yes (Other)
  Sender: FDA-Public Use
  Company Number: CA-BIOGEN-2018BI00543712

PATIENT
  Age: 46 Year
  Sex: Female

DRUGS (1)
  1. AVONEX [Suspect]
     Active Substance: INTERFERON BETA-1A
     Indication: MULTIPLE SCLEROSIS
     Dosage: OFF ABEL USE
     Route: 030
     Dates: start: 20151226, end: 20170621

REACTIONS (2)
  - Off label use [Unknown]
  - Intracranial mass [Unknown]

NARRATIVE: CASE EVENT DATE: 20170621
